FAERS Safety Report 5586526-6 (Version None)
Quarter: 2007Q4

REPORT INFORMATION
  Report Type: 
  Country: None (occurrence: None)
  Receive Date: 20071205
  Receipt Date: 20070716
  Transmission Date: 20080405
  Serious: Yes (Other)
  Sender: FDA-Public Use
  Company Number: HQWYE117518JUL07

PATIENT
  Age: 56 Year
  Sex: Male
  Weight: 115.77 kg

DRUGS (8)
  1. EFFEXOR XR [Suspect]
     Indication: DEPRESSION
     Dosage: 37.5 MG 1X PER 1 DAY, ORAL
     Route: 048
     Dates: start: 20070709, end: 20070711
  2. SOMA [Concomitant]
  3. TEMAZEPAM [Concomitant]
  4. FAMVIR [Concomitant]
  5. PREDNISONE TAB [Concomitant]
  6. LIPITOR [Concomitant]
  7. BENICAR [Concomitant]
  8. HYDROCHLOROTHIAZIDE [Concomitant]

REACTIONS (2)
  - FEELING HOT [None]
  - PALPITATIONS [None]
